FAERS Safety Report 24756969 (Version 7)
Quarter: 2025Q1

REPORT INFORMATION
  Report Type: Report from Study
  Country: IL (occurrence: IL)
  Receive Date: 20241220
  Receipt Date: 20250315
  Transmission Date: 20250408
  Serious: Yes (Death, Hospitalization)
  Sender: ABBVIE
  Company Number: IL-ABBVIE-6052499

PATIENT
  Age: 67 Year
  Sex: Male
  Weight: 100 kg

DRUGS (14)
  1. FOSCARBIDOPA\FOSLEVODOPA [Suspect]
     Active Substance: FOSCARBIDOPA\FOSLEVODOPA
     Indication: Parkinson^s disease
     Route: 058
     Dates: start: 20240916, end: 20250108
  2. FOSCARBIDOPA\FOSLEVODOPA [Suspect]
     Active Substance: FOSCARBIDOPA\FOSLEVODOPA
     Route: 058
  3. RASAGILINE [Concomitant]
     Active Substance: RASAGILINE
     Indication: Parkinson^s disease
     Route: 048
     Dates: start: 20221201, end: 20250108
  4. ALLOPURINOL [Concomitant]
     Active Substance: ALLOPURINOL
     Indication: Hyperuricaemia
     Route: 048
     Dates: start: 20140301, end: 20250108
  5. MIRABEGRON [Concomitant]
     Active Substance: MIRABEGRON
     Indication: Benign prostatic hyperplasia
     Route: 048
     Dates: start: 20150512, end: 20250108
  6. TAMSULOSIN HYDROCHLORIDE [Concomitant]
     Active Substance: TAMSULOSIN HYDROCHLORIDE
     Indication: Benign prostatic hyperplasia
     Route: 048
     Dates: start: 20150512, end: 20250108
  7. BISOPROLOL FUMARATE [Concomitant]
     Active Substance: BISOPROLOL FUMARATE
     Indication: Essential hypertension
     Route: 048
     Dates: start: 20000601
  8. EMPAGLIFLOZIN\METFORMIN HYDROCHLORIDE [Concomitant]
     Active Substance: EMPAGLIFLOZIN\METFORMIN HYDROCHLORIDE
     Indication: Diabetes mellitus
     Route: 048
     Dates: start: 20150101, end: 20250108
  9. METFORMIN HYDROCHLORIDE [Concomitant]
     Active Substance: METFORMIN HYDROCHLORIDE
     Indication: Diabetes mellitus
     Route: 048
     Dates: start: 20150101, end: 20250108
  10. ELIQUIS [Concomitant]
     Active Substance: APIXABAN
     Indication: Atrial flutter
     Route: 048
     Dates: start: 20161216, end: 20250108
  11. VALSARTAN [Concomitant]
     Active Substance: VALSARTAN
     Indication: Essential hypertension
     Route: 048
     Dates: start: 20000601, end: 20250108
  12. LERCANIDIPINE HYDROCHLORIDE [Concomitant]
     Active Substance: LERCANIDIPINE HYDROCHLORIDE
     Indication: Essential hypertension
     Route: 048
     Dates: start: 20000601, end: 20250108
  13. SINEMET [Concomitant]
     Active Substance: CARBIDOPA\LEVODOPA
     Indication: Product used for unknown indication
     Dates: end: 20250108
  14. LIPITOR [Concomitant]
     Active Substance: ATORVASTATIN CALCIUM
     Indication: Hyperlipidaemia
     Route: 048
     Dates: start: 20000601, end: 20250108

REACTIONS (12)
  - Lymphoma [Fatal]
  - Fall [Unknown]
  - Pleural effusion [Recovered/Resolved]
  - Sudden death [Fatal]
  - Infusion site infection [Unknown]
  - Infusion site erythema [Recovering/Resolving]
  - Dizziness postural [Unknown]
  - Pulmonary oedema [Fatal]
  - Back injury [Unknown]
  - Spinal operation [Unknown]
  - On and off phenomenon [Unknown]
  - Nocturia [Unknown]

NARRATIVE: CASE EVENT DATE: 20241208
